FAERS Safety Report 23809930 (Version 2)
Quarter: 2024Q2

REPORT INFORMATION
  Report Type: Spontaneous
  Country: CN (occurrence: None)
  Receive Date: 20240502
  Receipt Date: 20240604
  Transmission Date: 20240716
  Serious: Yes (Hospitalization, Other)
  Sender: FDA-Public Use
  Company Number: 2024A100890

PATIENT
  Age: 61 Year
  Sex: Male
  Weight: 63 kg

DRUGS (18)
  1. OLAPARIB [Interacting]
     Active Substance: OLAPARIB
     Indication: Prostate cancer
     Route: 048
  2. OLAPARIB [Interacting]
     Active Substance: OLAPARIB
     Indication: Prostate cancer
     Route: 048
  3. OLAPARIB [Interacting]
     Active Substance: OLAPARIB
     Indication: Prostate cancer
     Dosage: 300 MG IN THE MORNING + 150 MG IN THE EVENING
     Route: 048
  4. FLUCONAZOLE [Interacting]
     Active Substance: FLUCONAZOLE
  5. NIFEDIPINE [Concomitant]
     Active Substance: NIFEDIPINE
     Indication: Hypertension
     Route: 048
  6. ASPIRIN [Concomitant]
     Active Substance: ASPIRIN
     Indication: Coronary artery disease
     Route: 048
  7. ROSUVASTATIN CALCIUM [Concomitant]
     Active Substance: ROSUVASTATIN CALCIUM
     Indication: Coronary artery disease
     Route: 048
  8. BICALUTAMIDE [Concomitant]
     Active Substance: BICALUTAMIDE
     Indication: Prostate cancer
     Route: 048
  9. ABIRATERONE ACETATE [Concomitant]
     Active Substance: ABIRATERONE ACETATE
     Indication: Prostate cancer
     Route: 048
  10. PREDNISONE ACETATE [Concomitant]
     Active Substance: PREDNISONE ACETATE
     Indication: Prostate cancer
     Route: 048
  11. DOCETAXEL [Concomitant]
     Active Substance: DOCETAXEL\DOCETAXEL ANHYDROUS
     Indication: Prostate cancer
  12. FLUTAMIDE [Concomitant]
     Active Substance: FLUTAMIDE
     Indication: Prostate cancer
  13. LEVOFLOXACIN HYDROCHLORIDE [Concomitant]
     Active Substance: LEVOFLOXACIN HYDROCHLORIDE
     Dosage: SPECIFICATION 100 ML: LEVOFLOXACIN 0.3 G AND SODIUM CHLORIDE 0.9 G) EMPIRICALLY, QD
  14. SODIUM CHLORIDE [Concomitant]
     Active Substance: SODIUM CHLORIDE
     Dosage: SPECIFICATION 100 ML: LEVOFLOXACIN 0.3 G AND SODIUM CHLORIDE 0.9 G) EMPIRICALLY, QD
  15. MEROPENEM [Concomitant]
     Active Substance: MEROPENEM
     Route: 048
  16. SULBACTAM SODIUM [Concomitant]
     Active Substance: SULBACTAM SODIUM
     Dosage: 3G, Q12H
  17. CEFOPERAZONE SODIUM [Concomitant]
     Active Substance: CEFOPERAZONE SODIUM
     Dosage: 3G, Q12H
  18. VANCOMYCIN HYDROCHLORIDE [Concomitant]
     Active Substance: VANCOMYCIN HYDROCHLORIDE
     Dosage: 0.5G, Q8H

REACTIONS (2)
  - Interstitial lung disease [Recovering/Resolving]
  - Drug interaction [Unknown]
